FAERS Safety Report 8094694-X (Version None)
Quarter: 2012Q1

REPORT INFORMATION
  Report Type: 
  Country: None (occurrence: None)
  Receive Date: 20120129
  Receipt Date: 20111219
  Transmission Date: 20120608
  Serious: No
  Sender: FDA-Public Use
  Company Number: US-ABBOTT-11P-163-0885259-00

PATIENT
  Sex: Female
  Weight: 72.64 kg

DRUGS (3)
  1. AFRIN [Concomitant]
     Indication: PRODUCT USED FOR UNKNOWN INDICATION
  2. PULMICORT [Concomitant]
     Indication: ASTHMA
  3. HUMIRA [Suspect]
     Indication: PSORIATIC ARTHROPATHY
     Dates: start: 20090101

REACTIONS (4)
  - SLEEP PARALYSIS [None]
  - HEADACHE [None]
  - RHINORRHOEA [None]
  - COUGH [None]
